FAERS Safety Report 7544382-0 (Version None)
Quarter: 2011Q2

REPORT INFORMATION
  Report Type: 
  Country: None (occurrence: None)
  Receive Date: 20110613
  Receipt Date: 20080404
  Transmission Date: 20111010
  Serious: Yes (Hospitalization, Other)
  Sender: FDA-Public Use
  Company Number: PHHY2008SI04680

PATIENT
  Sex: Female

DRUGS (4)
  1. DIAPREL [Concomitant]
     Dosage: UNK
  2. NEXIUM [Concomitant]
     Dosage: UNK
  3. DIOVAN HCT [Suspect]
     Indication: HYPERTENSION
     Dosage: 160/12.5 MG DAILY
     Route: 048
     Dates: start: 20071122
  4. LESCOL XL [Concomitant]
     Dosage: UNK

REACTIONS (2)
  - BRAIN NEOPLASM [None]
  - PAPILLOEDEMA [None]
